FAERS Safety Report 7659407-1 (Version None)
Quarter: 2011Q3

REPORT INFORMATION
  Report Type: 
  Country: None (occurrence: None)
  Receive Date: 20110805
  Receipt Date: 20110725
  Transmission Date: 20111222
  Serious: Yes (Hospitalization)
  Sender: FDA-Public Use
  Company Number: FR-CELGENEUS-056-21880-11072789

PATIENT
  Age: 74 Year
  Sex: Male

DRUGS (11)
  1. REVLIMID [Suspect]
     Dosage: 15 MILLIGRAM
     Route: 048
     Dates: start: 20090924, end: 20091018
  2. REVLIMID [Suspect]
     Dosage: 15 MILLIGRAM
     Route: 048
     Dates: start: 20091022
  3. ATORVASTATIN CALCIUM [Concomitant]
     Route: 065
  4. PHENOXYMETHYL PENICILLIN [Concomitant]
     Route: 065
  5. LYRICA [Concomitant]
     Route: 065
  6. DEXAMETHASONE [Suspect]
     Route: 065
     Dates: start: 20091022
  7. NEXIUM [Concomitant]
     Route: 065
  8. BACTRIM [Concomitant]
     Route: 065
  9. COZAAR [Concomitant]
     Route: 065
  10. DEXAMETHASONE [Suspect]
     Route: 065
     Dates: start: 20090924, end: 20091018
  11. ASPIRIN [Concomitant]
     Route: 065

REACTIONS (1)
  - LUNG DISORDER [None]
